FAERS Safety Report 21034406 (Version 1)
Quarter: 2022Q3

REPORT INFORMATION
  Report Type: Spontaneous
  Country: FR (occurrence: FR)
  Receive Date: 20220701
  Receipt Date: 20220701
  Transmission Date: 20221027
  Serious: Yes (Hospitalization)
  Sender: FDA-Public Use
  Company Number: None

PATIENT
  Age: 89 Year
  Sex: Male
  Weight: 56.5 kg

DRUGS (8)
  1. ALPRAZOLAM [Suspect]
     Active Substance: ALPRAZOLAM
     Indication: Anxiety disorder
     Dosage: UNIT DOSE : 1.75 MG , FREQUENCY TIME : 1 DAYS , THERAPY START DATE : ASKU
     Route: 048
  2. OMEPRAZOLE [Suspect]
     Active Substance: OMEPRAZOLE
     Indication: Prophylaxis
     Dosage: UNIT DOSE : 20 MG , FREQUENCY TIME : 1 DAYS , DURATION : 3 DAYS
     Route: 048
     Dates: start: 20211224, end: 20211227
  3. IBUPROFEN [Suspect]
     Active Substance: IBUPROFEN
     Indication: Back pain
     Dosage: UNIT DOSE : 400 MG , FREQUENCY TIME : 1 DAYS , DURATION : 7 DAYS
     Route: 048
     Dates: start: 20211224, end: 20211227
  4. DICLOFENAC [Suspect]
     Active Substance: DICLOFENAC
     Indication: Back pain
     Dosage: DURATION: 3 DAYS
     Route: 003
     Dates: start: 20211224, end: 20211227
  5. METHOCARBAMOL\METHYL NICOTINATE [Suspect]
     Active Substance: METHOCARBAMOL\METHYL NICOTINATE
     Indication: Back pain
     Dosage: UNIT DOSE : 2 DF , FREQUENCY TIME : 1 DAYS , DURATION : 3 DAYS
     Route: 048
     Dates: start: 20211224, end: 20211227
  6. IBUPROFEN [Concomitant]
     Active Substance: IBUPROFEN
     Indication: Product used for unknown indication
  7. ACETAMINOPHEN [Concomitant]
     Active Substance: ACETAMINOPHEN
     Indication: Product used for unknown indication
  8. NIFLUMIC ACID [Concomitant]
     Active Substance: NIFLUMIC ACID
     Indication: Product used for unknown indication

REACTIONS (2)
  - Hallucination, visual [Recovered/Resolved]
  - Confusional state [Recovered/Resolved]

NARRATIVE: CASE EVENT DATE: 20211226
